FAERS Safety Report 8042454-8 (Version None)
Quarter: 2012Q1

REPORT INFORMATION
  Report Type: 
  Country: None (occurrence: None)
  Receive Date: 20120112
  Receipt Date: 20120110
  Transmission Date: 20120608
  Serious: No
  Sender: FDA-Public Use
  Company Number: US-PFIZER INC-2011260101

PATIENT
  Sex: Female
  Weight: 95 kg

DRUGS (8)
  1. LYRICA [Suspect]
     Indication: NEUROPATHY PERIPHERAL
     Dosage: 75 MG, 1X/DAY
     Route: 048
     Dates: start: 20090101, end: 20110701
  2. LIDODERM [Concomitant]
     Dosage: UNK
  3. LYRICA [Suspect]
     Dosage: 75 MG, 3X/DAY
     Route: 048
     Dates: start: 20110701
  4. XANAX [Concomitant]
     Dosage: 0.5 MG, UNK
  5. HYDROCHLOROTHIAZIDE [Concomitant]
     Dosage: 12.5 MG, UNK
  6. LANTUS [Concomitant]
     Dosage: UNK
  7. SYNTHROID [Concomitant]
     Dosage: UNK
  8. INSULIN [Concomitant]
     Dosage: UNK

REACTIONS (6)
  - FEELING ABNORMAL [None]
  - GAIT DISTURBANCE [None]
  - BLOOD TEST ABNORMAL [None]
  - PARAESTHESIA [None]
  - HYPOAESTHESIA [None]
  - DRUG INEFFECTIVE [None]
